FAERS Safety Report 7850735-3 (Version None)
Quarter: 2011Q4

REPORT INFORMATION
  Report Type: 
  Country: None (occurrence: None)
  Receive Date: 20111024
  Receipt Date: 20111013
  Transmission Date: 20120403
  Serious: Yes (Hospitalization)
  Sender: FDA-Public Use
  Company Number: 7088895

PATIENT
  Age: 39 Year
  Sex: Female

DRUGS (3)
  1. ADEPAL (EUGYNON /00022701/) (ETHINYLESTRADIOL) [Concomitant]
  2. THYROZOL 20 MG (THIAMAZOLE) (20 MG, COATED TABLET((THIAMAZOLE) [Suspect]
     Indication: HYPERTHYROIDISM
     Dosage: 2 DF (2 DF, 1 IN 1 D) ORAL
     Route: 048
     Dates: start: 20101101, end: 20110922
  3. LEVOTHYROXINE SODIUM [Suspect]
     Indication: HYPERTHYROIDISM
     Dosage: 1 DF (1 DF, 1 IN 1 D)  ORAL, LONG TERM
     Route: 048

REACTIONS (3)
  - SPINAL MYELOGRAM ABNORMAL [None]
  - AGRANULOCYTOSIS [None]
  - NEUTROPENIA [None]
